FAERS Safety Report 18724593 (Version 1)
Quarter: 2021Q1

REPORT INFORMATION
  Report Type: Spontaneous
  Country: US (occurrence: US)
  Receive Date: 20210111
  Receipt Date: 20210111
  Transmission Date: 20210419
  Serious: Yes (Hospitalization)
  Sender: FDA-Public Use
  Company Number: None

PATIENT
  Age: 82 Year
  Sex: Female
  Weight: 67.5 kg

DRUGS (4)
  1. ENOXAPARIN 60 MG [Concomitant]
     Dates: start: 20210108
  2. DEXAMETHASONE 6 MG [Concomitant]
     Dates: start: 20210108
  3. REMDESIVIR 200 MG [Concomitant]
     Active Substance: REMDESIVIR
     Dates: start: 20210108
  4. BAMLANIVIMAB. [Suspect]
     Active Substance: BAMLANIVIMAB
     Indication: COVID-19
     Dosage: ?          OTHER FREQUENCY:ONCE;?
     Route: 041
     Dates: start: 20210108, end: 20210108

REACTIONS (1)
  - Oxygen saturation decreased [None]

NARRATIVE: CASE EVENT DATE: 20210108
